FAERS Safety Report 20838118 (Version 1)
Quarter: 2022Q2

REPORT INFORMATION
  Report Type: Spontaneous
  Country: US (occurrence: US)
  Receive Date: 20220517
  Receipt Date: 20220517
  Transmission Date: 20220720
  Serious: No
  Sender: FDA-Public Use
  Company Number: US-ALLERGAN-2206737US

PATIENT
  Age: 37 Year
  Sex: Male

DRUGS (1)
  1. KYBELLA [Suspect]
     Active Substance: DEOXYCHOLIC ACID
     Indication: Fat tissue increased
     Dosage: UNK, SINGLE
     Dates: start: 2021, end: 2021

REACTIONS (3)
  - Adverse event [Unknown]
  - Condition aggravated [Unknown]
  - Drug ineffective [Unknown]
